FAERS Safety Report 23133869 (Version 1)
Quarter: 2023Q4

REPORT INFORMATION
  Report Type: Report from Study
  Country: PR (occurrence: PR)
  Receive Date: 20231101
  Receipt Date: 20231101
  Transmission Date: 20240109
  Serious: Yes (Hospitalization, Other)
  Sender: FDA-Public Use
  Company Number: PR-ABBVIE-5474112

PATIENT
  Sex: Male
  Weight: 56.699 kg

DRUGS (2)
  1. VENCLEXTA [Suspect]
     Active Substance: VENETOCLAX
     Indication: Acute myeloid leukaemia
     Route: 048
     Dates: start: 20230508
  2. RYDAPT [Concomitant]
     Active Substance: MIDOSTAURIN
     Indication: Product used for unknown indication
     Dates: start: 202305

REACTIONS (9)
  - Headache [Not Recovered/Not Resolved]
  - Haematemesis [Not Recovered/Not Resolved]
  - Haemoglobin decreased [Unknown]
  - Abdominal pain upper [Unknown]
  - Decreased appetite [Not Recovered/Not Resolved]
  - Dyspnoea [Not Recovered/Not Resolved]
  - Platelet count decreased [Unknown]
  - Haematoma [Not Recovered/Not Resolved]
  - Dizziness [Not Recovered/Not Resolved]

NARRATIVE: CASE EVENT DATE: 20230101
